FAERS Safety Report 7115650-1 (Version None)
Quarter: 2010Q4

REPORT INFORMATION
  Report Type: 
  Country: None (occurrence: None)
  Receive Date: 20101122
  Receipt Date: 20101111
  Transmission Date: 20110411
  Serious: Yes (Other)
  Sender: FDA-Public Use
  Company Number: DE-JNJFOC-20101004291

PATIENT
  Age: 35 Year
  Sex: Male
  Weight: 75 kg

DRUGS (2)
  1. TOPIRAMATE [Suspect]
     Indication: ILL-DEFINED DISORDER
     Route: 048
  2. LAMOTRIGINE [Suspect]
     Indication: PARTIAL SEIZURES
     Route: 048
     Dates: start: 19980101

REACTIONS (2)
  - GLAUCOMA [None]
  - OPTIC ATROPHY [None]
